FAERS Safety Report 9900446 (Version 2)
Quarter: 2014Q1

REPORT INFORMATION
  Report Type: Report from Study
  Country: US (occurrence: US)
  Receive Date: 20140217
  Receipt Date: 20140320
  Transmission Date: 20141002
  Serious: Yes (Other)
  Sender: FDA-Public Use
  Company Number: US-009507513-1402USA006508

PATIENT
  Sex: 0

DRUGS (5)
  1. PEGINTRON [Suspect]
     Indication: HEPATITIS C
     Dosage: 1.5 MICROGRAM PER KILOGRAM, QW
     Route: 058
  2. PEGINTRON [Suspect]
     Indication: CHRONIC HEPATITIS C
  3. REBETOL [Suspect]
     Indication: HEPATITIS C
     Dosage: UNK, QD
     Route: 048
  4. REBETOL [Suspect]
     Indication: CHRONIC HEPATITIS C
  5. ELTROMBOPAG OLAMINE [Suspect]
     Indication: CHRONIC HEPATITIS C
     Dosage: 25-100MG, QD FOR 9 WEEKS

REACTIONS (1)
  - Hepatic cancer [Unknown]
